FAERS Safety Report 5797050-X (Version None)
Quarter: 2008Q2

REPORT INFORMATION
  Report Type: 
  Country: None (occurrence: None)
  Receive Date: 20080618
  Receipt Date: 20071113
  Transmission Date: 20081010
  Serious: Yes (Hospitalization)
  Sender: FDA-Public Use
  Company Number: 200716476US

PATIENT
  Age: 28 Year
  Sex: Female
  Weight: 88.18 kg

DRUGS (6)
  1. LANTUS [Suspect]
     Dosage: 900-950 U ONCE INJ
     Route: 042
     Dates: start: 20070901, end: 20070901
  2. PROZAC [Concomitant]
  3. DEPAKOTE [Concomitant]
  4. XANAX [Concomitant]
  5. AMITRIPTYLINE HYDROCHLORIDE (ELAVIL /00002202/) [Concomitant]
  6. QUETIAPINE FUMARATE (SEROQUEL /01270902/) [Concomitant]

REACTIONS (3)
  - HYPOGLYCAEMIA [None]
  - HYPOGLYCAEMIC COMA [None]
  - INTENTIONAL OVERDOSE [None]
